FAERS Safety Report 6599550-1 (Version None)
Quarter: 2010Q1

REPORT INFORMATION
  Report Type: 
  Country: None (occurrence: None)
  Receive Date: 20100224
  Receipt Date: 20100217
  Transmission Date: 20100710
  Serious: Yes (Death, Hospitalization, Other)
  Sender: FDA-Public Use
  Company Number: US-BAXTER-2010BH003318

PATIENT
  Sex: Male

DRUGS (6)
  1. HEPARIN SODIUM INJECTION [Suspect]
     Indication: HEART VALVE OPERATION
     Route: 065
     Dates: start: 20080201
  2. HEPARIN SODIUM INJECTION [Suspect]
     Indication: PROPHYLAXIS
     Route: 065
     Dates: start: 20080201
  3. HEPARIN SODIUM INJECTION [Suspect]
     Indication: DIALYSIS
     Route: 065
     Dates: start: 20080201
  4. HEPARIN SODIUM INJECTION [Suspect]
     Route: 058
     Dates: start: 20080201
  5. HEPARIN SODIUM INJECTION [Suspect]
     Route: 058
     Dates: start: 20080201
  6. HEPARIN SODIUM INJECTION [Suspect]
     Route: 058
     Dates: start: 20080201

REACTIONS (9)
  - BRADYCARDIA [None]
  - CONDITION AGGRAVATED [None]
  - DEATH [None]
  - HYPOTENSION [None]
  - LEUKOCYTOSIS [None]
  - NAUSEA [None]
  - PLATELET COUNT DECREASED [None]
  - RESPIRATORY FAILURE [None]
  - VOMITING [None]
